FAERS Safety Report 18637221 (Version 2)
Quarter: 2021Q1

REPORT INFORMATION
  Report Type: Report from Study
  Country: JP (occurrence: JP)
  Receive Date: 20201219
  Receipt Date: 20210211
  Transmission Date: 20210419
  Serious: Yes (Death, Life-Threatening)
  Sender: FDA-Public Use
  Company Number: JP-AMGEN-JPNCT2020205288

PATIENT
  Age: 81 Year
  Sex: Male

DRUGS (25)
  1. FUROSEMIDE. [Concomitant]
     Active Substance: FUROSEMIDE
     Indication: PLEURAL EFFUSION
     Dosage: 40 MG
     Route: 048
     Dates: end: 20161207
  2. MORPHINE HYDROCHLORIDE [Concomitant]
     Active Substance: MORPHINE HYDROCHLORIDE
     Dosage: 10 MG
     Route: 065
     Dates: start: 20161207, end: 20161208
  3. OMEPRAZOLE. [Concomitant]
     Active Substance: OMEPRAZOLE
     Indication: MYELODYSPLASTIC SYNDROME
     Dosage: 40 MG
     Route: 065
     Dates: start: 20161209, end: 20170104
  4. FUROSEMIDE. [Concomitant]
     Active Substance: FUROSEMIDE
     Dosage: 20 MG
     Route: 065
     Dates: end: 20170104
  5. NONTHRON [Concomitant]
     Dosage: 1500 IU
     Route: 065
     Dates: start: 20161216, end: 20161222
  6. FUROSEMIDE. [Concomitant]
     Active Substance: FUROSEMIDE
  7. REBAMIPIDE [Concomitant]
     Active Substance: REBAMIPIDE
     Dosage: 300 MG
     Route: 048
     Dates: end: 20161207
  8. VESICARE [Concomitant]
     Active Substance: SOLIFENACIN SUCCINATE
     Indication: HYPERTONIC BLADDER
     Dosage: 5 MG
     Route: 048
     Dates: end: 20161207
  9. ATENOLOL. [Concomitant]
     Active Substance: ATENOLOL
     Indication: HYPERTENSION
     Dosage: 50 MG
     Route: 048
     Dates: end: 20161207
  10. MAGNESIUM OXIDE. [Concomitant]
     Active Substance: MAGNESIUM OXIDE
     Dosage: 1980 MG
     Route: 048
     Dates: end: 20161207
  11. SENNOSIDE A+B CALCIUM [Concomitant]
     Active Substance: SENNOSIDES A AND B
     Dosage: 24 MG
     Route: 048
     Dates: end: 20161207
  12. POLARAMINE [Concomitant]
     Active Substance: DEXCHLORPHENIRAMINE MALEATE
     Dosage: 5 MG
     Route: 065
     Dates: end: 20170104
  13. PLATELETS [Concomitant]
     Active Substance: HUMAN PLATELET, ALLOGENIC
     Indication: MYELODYSPLASTIC SYNDROME
     Dosage: 10 IU
     Route: 065
     Dates: end: 20170104
  14. FUNGUARD [Concomitant]
     Active Substance: MICAFUNGIN SODIUM
     Indication: MYELODYSPLASTIC SYNDROME
     Dosage: 150 MILLIGRAM
     Route: 065
     Dates: start: 20161214, end: 20170104
  15. FLORINEF ACETATE [Concomitant]
     Active Substance: FLUDROCORTISONE ACETATE
     Indication: HYPONATRAEMIA
     Dosage: 0.05 MG
     Route: 048
     Dates: end: 20161207
  16. MEROPENEM. [Concomitant]
     Active Substance: MEROPENEM
     Indication: MYELODYSPLASTIC SYNDROME
     Dosage: 1 G
     Route: 065
     Dates: end: 20170102
  17. DARBEPOETIN ALFA [Suspect]
     Active Substance: DARBEPOETIN ALFA
     Indication: MYELODYSPLASTIC SYNDROME
     Dosage: 40 MICROGRAM
     Route: 058
     Dates: start: 20161207, end: 20161207
  18. FUROSEMIDE. [Concomitant]
     Active Substance: FUROSEMIDE
     Indication: OEDEMA PERIPHERAL
  19. DALTEPARIN NA [Concomitant]
     Active Substance: DALTEPARIN SODIUM
     Dosage: 4000 IU
     Route: 065
     Dates: start: 20161216, end: 20170103
  20. MECOBALAMIN [Concomitant]
     Active Substance: METHYLCOBALAMIN
     Indication: SUDDEN HEARING LOSS
     Dosage: 1500 UG
     Route: 048
     Dates: end: 20161207
  21. FINIBAX [Concomitant]
     Active Substance: DORIPENEM MONOHYDRATE
     Indication: MYELODYSPLASTIC SYNDROME
     Dosage: 0.5 G
     Route: 065
     Dates: end: 20170105
  22. ADENOSINE TRIPHOSPHATE DISODIUM [Concomitant]
     Active Substance: ADENOSINE TRIPHOSPHATE DISODIUM
     Indication: SUDDEN HEARING LOSS
     Dosage: 60 MG
     Route: 048
     Dates: end: 20161207
  23. ROZEREM [Concomitant]
     Active Substance: RAMELTEON
     Dosage: 8 MG
     Route: 048
     Dates: end: 20161207
  24. TIAPRIDE HYDROCHLORIDE [Concomitant]
     Active Substance: TIAPRIDE HYDROCHLORIDE
     Dosage: 25 MG
     Route: 048
     Dates: end: 20161207
  25. TAZOPIPE [Concomitant]
     Active Substance: PIPERACILLIN SODIUM\TAZOBACTAM SODIUM
     Indication: CALCULUS URINARY
     Dosage: 13.5 G
     Route: 065
     Dates: end: 20161226

REACTIONS (3)
  - Transformation to acute myeloid leukaemia [Fatal]
  - Cardiac failure [Not Recovered/Not Resolved]
  - Disseminated intravascular coagulation [Not Recovered/Not Resolved]

NARRATIVE: CASE EVENT DATE: 20161207
